FAERS Safety Report 18394157 (Version 1)
Quarter: 2020Q4

REPORT INFORMATION
  Report Type: Spontaneous
  Country: CA (occurrence: CA)
  Receive Date: 20201016
  Receipt Date: 20201016
  Transmission Date: 20210114
  Serious: Yes (Hospitalization, Other)
  Sender: FDA-Public Use
  Company Number: CA-PFIZER INC-2020396688

PATIENT
  Age: 48 Year
  Sex: Male

DRUGS (11)
  1. INFLIXIMAB [Concomitant]
     Active Substance: INFLIXIMAB
     Dosage: UNK
  2. INFLIXIMAB [Concomitant]
     Active Substance: INFLIXIMAB
     Dosage: UNK
     Route: 042
  3. INFLIXIMAB [Concomitant]
     Active Substance: INFLIXIMAB
     Indication: COLITIS ULCERATIVE
     Dosage: UNK
  4. INFLIXIMAB [Concomitant]
     Active Substance: INFLIXIMAB
     Dosage: UNK
  5. CIPROFLOXACIN. [Suspect]
     Active Substance: CIPROFLOXACIN
     Dosage: UNK, 2X/DAY
     Route: 065
  6. IMODIUM [Concomitant]
     Active Substance: LOPERAMIDE HYDROCHLORIDE
     Dosage: UNK
  7. IMURAN [Concomitant]
     Active Substance: AZATHIOPRINE
     Dosage: UNK
  8. METRONIDAZOLE. [Suspect]
     Active Substance: METRONIDAZOLE
     Dosage: UNK, 2X/DAY
     Route: 065
  9. INFLIXIMAB [Concomitant]
     Active Substance: INFLIXIMAB
     Dosage: 500 MG
  10. PREDNISONE. [Suspect]
     Active Substance: PREDNISONE
     Dosage: UNK
     Route: 065
  11. INFLIXIMAB [Concomitant]
     Active Substance: INFLIXIMAB
     Dosage: UNK

REACTIONS (3)
  - Rectal haemorrhage [Unknown]
  - Pouchitis [Unknown]
  - Laboratory test abnormal [Unknown]
